FAERS Safety Report 4448722-0 (Version None)
Quarter: 2004Q3

REPORT INFORMATION
  Report Type: 
  Country: None (occurrence: None)
  Receive Date: 20040909
  Receipt Date: 20040826
  Transmission Date: 20050211
  Serious: Yes (Other)
  Sender: FDA-Public Use
  Company Number: 2004EU001614

PATIENT
  Age: 22 Year
  Sex: Male

DRUGS (4)
  1. PROGRAF [Suspect]
     Indication: TRANSPLANT
     Dosage: D
  2. MYCOPHENOLATE MOFETIL (MYCOPHENOLATE MOFETIL) [Concomitant]
  3. PREDNISONE [Concomitant]
  4. ANTITHYMOCYTE IMMUNOGLOBULIN (ANTITHYMOCYTE IMMUNOGLOBULIN) [Concomitant]

REACTIONS (4)
  - ARTERIAL THROMBOSIS [None]
  - OSTEOMYELITIS [None]
  - RASH MACULO-PAPULAR [None]
  - TRANSPLANT REJECTION [None]
